FAERS Safety Report 13302256 (Version 1)
Quarter: 2017Q1

REPORT INFORMATION
  Report Type: Spontaneous
  Country: US (occurrence: US)
  Receive Date: 20170307
  Receipt Date: 20170307
  Transmission Date: 20170428
  Serious: Yes (Hospitalization, Other)
  Sender: FDA-Public Use
  Company Number: US-MYLANLABS-2017M1013825

PATIENT

DRUGS (1)
  1. FLUOROURACIL. [Suspect]
     Active Substance: FLUOROURACIL
     Indication: SMALL INTESTINE CARCINOMA
     Dosage: FLUOROURACIL INFUSION
     Route: 050

REACTIONS (1)
  - Arteriospasm coronary [Recovered/Resolved]
